FAERS Safety Report 6496694-X (Version None)
Quarter: 2009Q4

REPORT INFORMATION
  Report Type: 
  Country: None (occurrence: None)
  Receive Date: 20091210
  Receipt Date: 20091127
  Transmission Date: 20100525
  Serious: Yes (Death, Hospitalization)
  Sender: FDA-Public Use
  Company Number: GB-EBEWE-1815OXALI09FU1

PATIENT
  Age: 64 Year
  Sex: Male

DRUGS (3)
  1. OXALIPLATIN [Suspect]
     Indication: COLORECTAL CANCER
     Dates: start: 20090701, end: 20090701
  2. OXALIPLATIN [Suspect]
     Indication: COLORECTAL CANCER
     Dates: start: 20090801, end: 20090801
  3. CAPECITABINE [Concomitant]

REACTIONS (1)
  - MALAISE [None]
